FAERS Safety Report 8772365 (Version 2)
Quarter: 2013Q2

REPORT INFORMATION
  Report Type: Report from Study
  Country: JP (occurrence: JP)
  Receive Date: 20120906
  Receipt Date: 20130410
  Transmission Date: 20140414
  Serious: Yes (Hospitalization)
  Sender: FDA-Public Use
  Company Number: JP-009507513-1208JPN010278

PATIENT
  Age: 58 Year
  Sex: Female
  Weight: 62 kg

DRUGS (6)
  1. PEGINTRON [Suspect]
     Indication: CHRONIC HEPATITIS C
     Dosage: 1.5 MICROGRAM PER KILOGRAM, QW
     Route: 058
     Dates: start: 20120627, end: 20120722
  2. REBETOL [Suspect]
     Indication: CHRONIC HEPATITIS C
     Dosage: 800 MG, QD
     Route: 048
     Dates: start: 20120627, end: 20120724
  3. REBETOL [Suspect]
     Dosage: 400 MG, QD
     Route: 048
     Dates: start: 20120724, end: 20120725
  4. TELAVIC [Suspect]
     Indication: CHRONIC HEPATITIS C
     Dosage: DOSE: 2250 MG, CUMULATIVE DOSE: 6750 MG
     Route: 048
     Dates: start: 20120627, end: 20120718
  5. TELAVIC [Suspect]
     Dosage: DOSE: 1500 MG, CUMULATIVE DOSE: 6750 MG
     Route: 048
     Dates: start: 20120719, end: 20120725
  6. SOLANAX [Concomitant]
     Dosage: FORMULATION:POR
     Route: 048
     Dates: start: 20120706

REACTIONS (1)
  - Anxiety [Not Recovered/Not Resolved]
